FAERS Safety Report 9678445 (Version 2)
Quarter: 2013Q4

REPORT INFORMATION
  Report Type: Spontaneous
  Country: US (occurrence: US)
  Receive Date: 20131108
  Receipt Date: 20131209
  Transmission Date: 20140711
  Serious: Yes (Death, Hospitalization, Other)
  Sender: FDA-Public Use
  Company Number: US-INCYTE CORPORATION-2013IN002627

PATIENT
  Age: 69 Year
  Sex: Female

DRUGS (3)
  1. JAKAFI [Suspect]
     Indication: MYELOFIBROSIS
     Dosage: 5 MG, BID
     Route: 048
  2. JAKAFI [Suspect]
     Dosage: 15 MG, BID
     Route: 048
  3. ALLOPURINOL [Concomitant]

REACTIONS (7)
  - Disease progression [Fatal]
  - Pancytopenia [Not Recovered/Not Resolved]
  - Escherichia urinary tract infection [Unknown]
  - Pyelonephritis [Unknown]
  - Renal impairment [None]
  - Anaemia [Unknown]
  - Bladder prolapse [None]
